FAERS Safety Report 4683266-2 (Version None)
Quarter: 2005Q2

REPORT INFORMATION
  Report Type: 
  Country: None (occurrence: None)
  Receive Date: 20050602
  Receipt Date: 20050422
  Transmission Date: 20051028
  Serious: No
  Sender: FDA-Public Use
  Company Number: USA050393175

PATIENT
  Age: 35 Year
  Sex: Female
  Weight: 74 kg

DRUGS (9)
  1. CYMBALTA [Suspect]
     Indication: FIBROMYALGIA
     Dosage: 60 MG DAY
     Dates: start: 20050201
  2. PERCOCET [Concomitant]
  3. XANAX (ALPRAZOLAM DUM) [Concomitant]
  4. ZANAFLEX [Concomitant]
  5. PREMARIN [Concomitant]
  6. AXERT [Concomitant]
  7. DYAZIDE [Concomitant]
  8. PREVACID [Concomitant]
  9. LOPID [Concomitant]

REACTIONS (11)
  - DYSPNOEA [None]
  - HEADACHE [None]
  - IRRITABILITY [None]
  - MOTION SICKNESS [None]
  - MUSCLE TIGHTNESS [None]
  - NAUSEA [None]
  - NIGHTMARE [None]
  - PALPITATIONS [None]
  - PARAESTHESIA [None]
  - TREMOR [None]
  - VOMITING [None]
